FAERS Safety Report 6724545-4 (Version None)
Quarter: 2010Q2

REPORT INFORMATION
  Report Type: 
  Country: None (occurrence: None)
  Receive Date: 20100513
  Receipt Date: 20100430
  Transmission Date: 20101027
  Serious: Yes (Other)
  Sender: FDA-Public Use
  Company Number: JP-PFIZER INC-2010034035

PATIENT
  Age: 60 Year
  Sex: Male

DRUGS (12)
  1. ZITHROMAX [Suspect]
     Indication: BRONCHITIS
     Dosage: 500 MG, 1X/DAY
     Route: 048
     Dates: start: 20100312, end: 20100312
  2. HUSTAZOL [Concomitant]
     Dosage: UNK
     Route: 048
     Dates: start: 20100309, end: 20100311
  3. BROCIN [Concomitant]
     Dosage: UNK
     Route: 048
     Dates: start: 20100309, end: 20100311
  4. MEDICON [Concomitant]
     Dosage: UNK
     Route: 048
     Dates: start: 20100312, end: 20100316
  5. MUCODYNE [Concomitant]
     Dosage: UNK
     Route: 048
     Dates: start: 20100312, end: 20100316
  6. HOKUNALIN [Concomitant]
     Dosage: UNK
     Route: 062
     Dates: start: 20100312, end: 20100316
  7. ASPIRIN [Concomitant]
     Dosage: UNK
     Route: 048
  8. LIPITOR [Concomitant]
     Dosage: UNK
     Route: 048
  9. DEPAS [Concomitant]
     Dosage: UNK
     Route: 048
  10. CANDESARTAN CILEXETIL [Concomitant]
     Dosage: UNK
     Route: 048
  11. CABAGIN [Concomitant]
     Dosage: UNK
     Route: 048
  12. KLARICID [Concomitant]
     Dosage: UNK
     Route: 048
     Dates: start: 20100312, end: 20100320

REACTIONS (2)
  - COLD SWEAT [None]
  - MUSCLE SPASMS [None]
